FAERS Safety Report 16638090 (Version 2)
Quarter: 2019Q3

REPORT INFORMATION
  Report Type: Spontaneous
  Country: CA (occurrence: CA)
  Receive Date: 20190726
  Receipt Date: 20190830
  Transmission Date: 20191004
  Serious: Yes (Hospitalization)
  Sender: FDA-Public Use
  Company Number: CA-ACTELION-A-US2019-193338

PATIENT
  Age: 20 Year
  Sex: Male
  Weight: 90.7 kg

DRUGS (11)
  1. POTASSIUM CHLORIDE. [Concomitant]
     Active Substance: POTASSIUM CHLORIDE
     Dosage: 1500 MG, BID
  2. CARIPUL [Suspect]
     Active Substance: EPOPROSTENOL
     Indication: PULMONARY ARTERIAL HYPERTENSION
     Dosage: 60000 NG
     Route: 042
     Dates: start: 20180914
  3. CARIPUL [Suspect]
     Active Substance: EPOPROSTENOL
     Dosage: 5 VIALS/DAY
     Route: 042
  4. METOPROLOL. [Concomitant]
     Active Substance: METOPROLOL
  5. MAGNESIUM GLUCONATE [Concomitant]
     Active Substance: MAGNESIUM GLUCONATE
     Dosage: 1000 MG, BID
  6. SERTRALINE [Concomitant]
     Active Substance: SERTRALINE HYDROCHLORIDE
     Dosage: 25 MG, QD
  7. CARIPUL [Suspect]
     Active Substance: EPOPROSTENOL
     Dosage: 40 NG/KG, PER MIN
     Route: 042
     Dates: start: 20190703
  8. AMBRISENTAN [Concomitant]
     Active Substance: AMBRISENTAN
     Dosage: 10 MG, QD
  9. TADALAFIL. [Concomitant]
     Active Substance: TADALAFIL
     Dosage: 40 MG, QD
     Dates: start: 20190703
  10. SYNTHROID [Concomitant]
     Active Substance: LEVOTHYROXINE SODIUM
     Dosage: 1000 MCG, QD
  11. CARIPUL [Suspect]
     Active Substance: EPOPROSTENOL
     Dosage: UNK
     Route: 042

REACTIONS (3)
  - Pulmonary arterial hypertension [Unknown]
  - Disease progression [Unknown]
  - Hypoxia [Unknown]

NARRATIVE: CASE EVENT DATE: 20190710
